FAERS Safety Report 17496387 (Version 2)
Quarter: 2020Q1

REPORT INFORMATION
  Report Type: Spontaneous
  Country: US (occurrence: US)
  Receive Date: 20200304
  Receipt Date: 20200327
  Transmission Date: 20200409
  Serious: No
  Sender: FDA-Public Use
  Company Number: US-VERTEX PHARMACEUTICALS-2020-003831

PATIENT
  Age: 36 Year
  Sex: Female
  Weight: 29 kg

DRUGS (1)
  1. TRIKAFTA [Suspect]
     Active Substance: ELEXACAFTOR\IVACAFTOR\TEZACAFTOR
     Indication: CYSTIC FIBROSIS
     Dosage: ELEXACAFTR 100MG/ TEZACAFTOR 50MG/ IVACAFTOR 75MG; IVACAFTOR 150MG, UNK FREQ
     Route: 048
     Dates: start: 20200201

REACTIONS (3)
  - Rash [Unknown]
  - Dry throat [Not Recovered/Not Resolved]
  - Influenza [Recovered/Resolved]

NARRATIVE: CASE EVENT DATE: 2020
